FAERS Safety Report 9230232 (Version 1)
Quarter: 2013Q1

REPORT INFORMATION
  Report Type: Spontaneous
  Country: US (occurrence: None)
  Receive Date: 20121024
  Receipt Date: 20121024
  Transmission Date: 20140127
  Serious: Yes (Other)
  Sender: FDA-Public Use
  Company Number: DSA_48363_2011

PATIENT
  Sex: Female

DRUGS (1)
  1. WELLBUTRIN (NOT SPECIFIED) [Suspect]
     Indication: SMOKING CESSATION THERAPY
     Dosage: (DF)

REACTIONS (2)
  - Anaphylactic reaction [None]
  - Adverse drug reaction [None]
